FAERS Safety Report 15075526 (Version 1)
Quarter: 2018Q2

REPORT INFORMATION
  Report Type: Spontaneous
  Country: US (occurrence: US)
  Receive Date: 20180627
  Receipt Date: 20180627
  Transmission Date: 20180711
  Serious: Yes (Hospitalization)
  Sender: FDA-Public Use
  Company Number: US-SAOL THERAPEUTICS-2018SAO00831

PATIENT
  Age: 47 Year
  Sex: Male

DRUGS (2)
  1. LIORESAL [Suspect]
     Active Substance: BACLOFEN
     Dosage: 250 ?G, \DAY
     Route: 037
     Dates: start: 20180529
  2. LIORESAL [Suspect]
     Active Substance: BACLOFEN
     Dosage: 375 ?G, \DAY
     Route: 037
     Dates: end: 20180529

REACTIONS (1)
  - Infection [Recovered/Resolved]

NARRATIVE: CASE EVENT DATE: 201805
